FAERS Safety Report 8239720-X (Version None)
Quarter: 2012Q1

REPORT INFORMATION
  Report Type: 
  Country: None (occurrence: None)
  Receive Date: 20120328
  Receipt Date: 20120319
  Transmission Date: 20120608
  Serious: Yes (Hospitalization)
  Sender: FDA-Public Use
  Company Number: BE-JNJFOC-20120309763

PATIENT
  Age: 83 Year
  Sex: Male

DRUGS (14)
  1. SIMVASTATIN [Concomitant]
     Route: 065
  2. FLUTICASONE FUROATE [Concomitant]
     Route: 065
  3. MICONAZOLE [Suspect]
     Indication: STOMATITIS
     Route: 048
  4. PHENPROCOUMON [Interacting]
     Indication: ILL-DEFINED DISORDER
     Route: 065
  5. TIOTROPIUM [Concomitant]
     Route: 065
  6. MICONAZOLE [Suspect]
     Route: 048
  7. BISOPROLOL FUMARATE [Concomitant]
     Route: 065
  8. ENALAPRIL MALEATE [Concomitant]
     Route: 065
  9. NITROGLYCERIN [Concomitant]
     Route: 065
  10. TERAZOSIN HCL [Concomitant]
     Route: 065
  11. AMIODARONE HCL [Concomitant]
     Route: 065
  12. SPIRONOLACTONE [Concomitant]
     Route: 065
  13. BUMETANIDE [Concomitant]
     Route: 065
  14. SALMETEROL [Concomitant]
     Route: 065

REACTIONS (4)
  - PERITONEAL HAEMATOMA [None]
  - HAEMOGLOBIN DECREASED [None]
  - DRUG INTERACTION [None]
  - INTERNATIONAL NORMALISED RATIO INCREASED [None]
